FAERS Safety Report 24987388 (Version 2)
Quarter: 2025Q1

REPORT INFORMATION
  Report Type: Spontaneous
  Country: US (occurrence: US)
  Receive Date: 20250219
  Receipt Date: 20250318
  Transmission Date: 20250409
  Serious: No
  Sender: LYNE LABORATORIES
  Company Number: US-Lyne Laboratories Inc.-2171378

PATIENT
  Age: 43 Year
  Sex: Female

DRUGS (1)
  1. FLUOCINOLONE ACETONIDE [Suspect]
     Active Substance: FLUOCINOLONE ACETONIDE
     Indication: Ear pain
     Dates: start: 20241203, end: 20241204

REACTIONS (1)
  - Ear discomfort [Recovered/Resolved]

NARRATIVE: CASE EVENT DATE: 20241203
